FAERS Safety Report 20258548 (Version 1)
Quarter: 2021Q4

REPORT INFORMATION
  Report Type: Spontaneous
  Country: US (occurrence: None)
  Receive Date: 20211229
  Receipt Date: 20211229
  Transmission Date: 20220303
  Serious: Yes (Other)
  Sender: FDA-Public Use
  Company Number: None

PATIENT
  Age: 32 Year
  Sex: Female
  Weight: 122.0 kg

DRUGS (3)
  1. LEXAPRO [Suspect]
     Active Substance: ESCITALOPRAM OXALATE
  2. PROGESTERONE [Suspect]
     Active Substance: PROGESTERONE
  3. LETROZOLE [Suspect]
     Active Substance: LETROZOLE

REACTIONS (3)
  - Caesarean section [None]
  - Caesarean section [None]
  - Foetal distress syndrome [None]

NARRATIVE: CASE EVENT DATE: 20201022
